FAERS Safety Report 11857472 (Version 1)
Quarter: 2015Q4

REPORT INFORMATION
  Report Type: Spontaneous
  Country: US (occurrence: US)
  Receive Date: 20151221
  Receipt Date: 20151221
  Transmission Date: 20160305
  Serious: No
  Sender: FDA-Public Use
  Company Number: US-FERRINGPH-2015FE02705

PATIENT

DRUGS (9)
  1. SINGULAIR [Concomitant]
     Active Substance: MONTELUKAST SODIUM
  2. PRILOSEC [Concomitant]
     Active Substance: OMEPRAZOLE MAGNESIUM
  3. PATANOL [Concomitant]
     Active Substance: OLOPATADINE HYDROCHLORIDE
  4. LYSTEDA [Suspect]
     Active Substance: TRANEXAMIC ACID
     Indication: MENORRHAGIA
     Dosage: 650 MG, 3 TIMES DAILY
     Route: 048
     Dates: start: 201506
  5. LYSTEDA [Suspect]
     Active Substance: TRANEXAMIC ACID
     Dosage: 1300 MG, 3 TIMES DAILY
     Route: 048
     Dates: start: 201505, end: 201506
  6. MOTRIN [Concomitant]
     Active Substance: IBUPROFEN
  7. CLEOCIN T [Concomitant]
     Active Substance: CLINDAMYCIN PHOSPHATE
  8. CELEBREX [Concomitant]
     Active Substance: CELECOXIB
  9. DIFFERIN [Concomitant]
     Active Substance: ADAPALENE

REACTIONS (2)
  - Muscle tightness [Not Recovered/Not Resolved]
  - Myalgia [Not Recovered/Not Resolved]

NARRATIVE: CASE EVENT DATE: 201505
